FAERS Safety Report 11284380 (Version 1)
Quarter: 2015Q3

REPORT INFORMATION
  Report Type: Spontaneous
  Country: None (occurrence: GB)
  Receive Date: 20150720
  Receipt Date: 20150720
  Transmission Date: 20151125
  Serious: Yes (Other)
  Sender: FDA-Public Use
  Company Number: GB-MEDAC PHARMA, INC.-1040617

PATIENT
  Sex: Female

DRUGS (1)
  1. METOJECT PEN [Suspect]
     Active Substance: METHOTREXATE

REACTIONS (6)
  - Candida infection [Recovered/Resolved]
  - Personality change [Recovered/Resolved]
  - Peripheral swelling [Recovered/Resolved]
  - Nasal discomfort [Recovered/Resolved]
  - Mood swings [Recovered/Resolved]
  - Contusion [Recovered/Resolved]
